FAERS Safety Report 9889110 (Version 1)
Quarter: 2014Q1

REPORT INFORMATION
  Report Type: Spontaneous
  Country: US (occurrence: US)
  Receive Date: 20140211
  Receipt Date: 20140211
  Transmission Date: 20141002
  Serious: Yes (Hospitalization)
  Sender: FDA-Public Use
  Company Number: US-BAYER-2014-016789

PATIENT
  Age: 75 Year
  Sex: Female

DRUGS (24)
  1. CIPRO [Suspect]
     Indication: KIDNEY INFECTION
     Dosage: UNK
  2. ADVAIR [Suspect]
     Indication: DYSPNOEA
     Dosage: 1 PUFF, BID
     Route: 055
     Dates: start: 201202
  3. ADVAIR [Suspect]
     Indication: CARDIAC FAILURE CONGESTIVE
  4. ATARAX [Suspect]
     Indication: KIDNEY INFECTION
     Dosage: UNK
     Dates: start: 20140102
  5. OLOPATADINE HYDROCHLORIDE [Concomitant]
  6. PRO-AIR [Concomitant]
  7. FLUTICASONE PROPIONATE [Concomitant]
  8. PREDNISONE [Concomitant]
  9. LYRICA [Concomitant]
  10. PLAQUENIL [Concomitant]
  11. KLOR-CON [Concomitant]
  12. METFORMIN HCL [Concomitant]
  13. SOTALOL [Concomitant]
  14. LASIX [Concomitant]
  15. COUMADIN [Concomitant]
  16. LOSARTAN [Concomitant]
  17. GLUCOTROL XL [Concomitant]
  18. SIMVASTATIN [Concomitant]
  19. SPIRIVA [Concomitant]
  20. LIDODERM [Concomitant]
  21. TYLENOL [PARACETAMOL] [Concomitant]
  22. LORTAB [Concomitant]
  23. FLEXERIL [Concomitant]
  24. MORPHINE [Concomitant]

REACTIONS (2)
  - Adverse reaction [Unknown]
  - Dyspnoea [None]
